FAERS Safety Report 6235369-9 (Version None)
Quarter: 2009Q2

REPORT INFORMATION
  Report Type: 
  Country: None (occurrence: None)
  Receive Date: 20090618
  Receipt Date: 20080319
  Transmission Date: 20091009
  Serious: No
  Sender: FDA-Public Use
  Company Number: US-ASTRAZENECA-2008UW05618

PATIENT
  Age: 12 Year
  Sex: Male

DRUGS (4)
  1. ENTOCORT EC [Suspect]
     Indication: CROHN'S DISEASE
     Route: 054
     Dates: start: 20071001
  2. ENTOCORT EC [Suspect]
     Indication: ENTEROCOLITIS
     Route: 054
     Dates: start: 20071001
  3. AZATHIOPRINE [Suspect]
     Indication: CROHN'S DISEASE
     Dosage: 100 TO 150 MG
     Route: 048
     Dates: start: 20071001
  4. AZATHIOPRINE [Suspect]
     Indication: ENTEROCOLITIS
     Dosage: 100 TO 150 MG
     Route: 048
     Dates: start: 20071001

REACTIONS (2)
  - CONDITION AGGRAVATED [None]
  - LABORATORY TEST ABNORMAL [None]
